FAERS Safety Report 23574545 (Version 3)
Quarter: 2024Q2

REPORT INFORMATION
  Report Type: Report from Study
  Country: BR (occurrence: BR)
  Receive Date: 20240228
  Receipt Date: 20240516
  Transmission Date: 20240716
  Serious: Yes (Other)
  Sender: FDA-Public Use
  Company Number: BR-JNJFOC-20240124444

PATIENT
  Age: 67 Year
  Sex: Female
  Weight: 88 kg

DRUGS (2)
  1. SIMPONI [Suspect]
     Active Substance: GOLIMUMAB
     Indication: Rheumatoid arthritis
     Route: 058
     Dates: start: 20231202
  2. SIMPONI [Suspect]
     Active Substance: GOLIMUMAB

REACTIONS (5)
  - Tuberculin test positive [Not Recovered/Not Resolved]
  - Pulmonary fibrosis [Unknown]
  - Influenza [Not Recovered/Not Resolved]
  - Immune system disorder [Unknown]
  - Pain [Unknown]

NARRATIVE: CASE EVENT DATE: 20240101
